FAERS Safety Report 5039066-7 (Version None)
Quarter: 2006Q2

REPORT INFORMATION
  Report Type: 
  Country: None (occurrence: None)
  Receive Date: 20060629
  Receipt Date: 20060419
  Transmission Date: 20061013
  Serious: Yes (Death, Hospitalization)
  Sender: FDA-Public Use
  Company Number: FRWYE568420APR06

PATIENT
  Sex: Male
  Weight: 125 kg

DRUGS (3)
  1. ENBREL [Suspect]
     Indication: PSORIASIS
     Route: 058
     Dates: start: 20051201
  2. ETHANOL [Suspect]
     Dosage: UNKNOWN
     Route: 048
  3. NOVATREX [Suspect]
     Indication: PSORIASIS
     Dosage: 25 MG TOTAL WEEKLY
     Route: 048
     Dates: start: 20040301, end: 20050801

REACTIONS (10)
  - ALANINE AMINOTRANSFERASE INCREASED [None]
  - ASPARTATE AMINOTRANSFERASE INCREASED [None]
  - BLOOD ALKALINE PHOSPHATASE INCREASED [None]
  - CARDIOVASCULAR DISORDER [None]
  - COMA HEPATIC [None]
  - HYPERKALAEMIA [None]
  - HYPONATRAEMIA [None]
  - PLATELET COUNT DECREASED [None]
  - PORTAL HYPERTENSION [None]
  - RENAL FAILURE [None]
